FAERS Safety Report 19012463 (Version 2)
Quarter: 2021Q2

REPORT INFORMATION
  Report Type: Spontaneous
  Country: US (occurrence: US)
  Receive Date: 20210315
  Receipt Date: 20210409
  Transmission Date: 20210717
  Serious: Yes (Life-Threatening, Disabling, Other)
  Sender: FDA-Public Use
  Company Number: US-AMERICAN REGENT INC-2021000627

PATIENT
  Age: 83 Year
  Sex: Female
  Weight: 84 kg

DRUGS (23)
  1. ELIQUIS [Concomitant]
     Active Substance: APIXABAN
     Indication: PRODUCT USED FOR UNKNOWN INDICATION
     Dosage: TAKE 1 (2.5 MG) TABLET BY MOUTH TWICE A DAY AS DIRECTED
     Route: 048
  2. LANTUS [Concomitant]
     Active Substance: INSULIN GLARGINE
     Dosage: INJECT 15 UNIT SUBCUTANEOUSLY EVERY EVENING
     Route: 058
  3. SENNA                              /00142201/ [Concomitant]
     Active Substance: SENNA LEAF
     Indication: PRODUCT USED FOR UNKNOWN INDICATION
     Dosage: 8.6 MG, TAKE 2 CAPSULE EVERY NIGHT AS NEEDED
     Route: 065
  4. EZETIMIBE. [Concomitant]
     Active Substance: EZETIMIBE
     Indication: PRODUCT USED FOR UNKNOWN INDICATION
     Dosage: 10 MG, TAKE 1 TABLET BY MOUTH AT BEDTIME AS DIRECTED
     Route: 048
  5. OXYCODONE HYDROCHLORIDE. [Concomitant]
     Active Substance: OXYCODONE HYDROCHLORIDE
     Indication: PAIN
     Dosage: 5 MG, TAKE 1 TABLET BY MOUTH EVERY FOUR HOURS AS NEEDED (ORAL ONLY (NOT FEEDING TUBES))
     Route: 048
  6. RENVELA [Concomitant]
     Active Substance: SEVELAMER CARBONATE
     Indication: PRODUCT USED FOR UNKNOWN INDICATION
     Dosage: 800 MG, TAKE 1 TABLET BY MOUTH THREE TIMES A DAY WITH MEALS AND 1 WITH SNACKS
     Route: 048
  7. VENOFER [Suspect]
     Active Substance: IRON SUCROSE
     Dosage: 100 MG X 10 DOSES
     Dates: start: 20210209, end: 20210209
  8. CARVEDILOL. [Concomitant]
     Active Substance: CARVEDILOL
     Indication: PRODUCT USED FOR UNKNOWN INDICATION
     Dosage: TAKE 1 (25 MG) TABLET BY MOUTH TWICE A DAY
     Route: 048
  9. LANTUS [Concomitant]
     Active Substance: INSULIN GLARGINE
     Indication: PRODUCT USED FOR UNKNOWN INDICATION
     Dosage: SOLOSTAR: INJECT 15 UNIT SUBCUTANEOUSLY ONCE A DAY
     Route: 058
  10. PROAIR HFA [Concomitant]
     Active Substance: ALBUTEROL SULFATE
     Indication: WHEEZING
     Dosage: INHALE 2 PUFF USING INHALER EVERY SIX HOURS AS NEEDED
  11. ANASTROZOLE. [Concomitant]
     Active Substance: ANASTROZOLE
     Indication: PRODUCT USED FOR UNKNOWN INDICATION
     Dosage: 1 TABLET ONCE A DAY
     Route: 065
  12. OMEPRAZOLE. [Concomitant]
     Active Substance: OMEPRAZOLE
     Indication: PRODUCT USED FOR UNKNOWN INDICATION
     Dosage: 20 MG, TAKE 1 CAPSULE BY MOUTH ONCE A DAY AS NEEDED
     Route: 048
  13. PROAIR HFA [Concomitant]
     Active Substance: ALBUTEROL SULFATE
     Indication: DYSPNOEA
  14. VENOFER [Suspect]
     Active Substance: IRON SUCROSE
     Dosage: 100 MG X 10 DOSES
     Dates: start: 20210223, end: 20210223
  15. SENNA PLUS                         /00142201/ [Concomitant]
     Active Substance: SENNA ALEXANDRINA WHOLE
     Indication: PRODUCT USED FOR UNKNOWN INDICATION
     Dosage: 8.6 MG?50 MG, TAKE 2 TABLET BY MOUTH ONCE A DAY AS NEEDED HOLD FOR LOOSE STOOLS
     Route: 048
  16. VENOFER [Suspect]
     Active Substance: IRON SUCROSE
     Indication: IRON DEFICIENCY
     Dosage: 100 MG X 10 DOSES
     Dates: start: 20210204, end: 20210204
  17. VENOFER [Suspect]
     Active Substance: IRON SUCROSE
     Dosage: 100 MG X 10 DOSES
     Dates: start: 20210206, end: 20210206
  18. MIRCERA [Suspect]
     Active Substance: METHOXY POLYETHYLENE GLYCOL-EPOETIN BETA
     Indication: NEPHROGENIC ANAEMIA
     Dosage: 50 MCG, ONCE
     Dates: start: 20210209, end: 20210209
  19. FERROUS SULFATE. [Concomitant]
     Active Substance: FERROUS SULFATE
     Indication: PRODUCT USED FOR UNKNOWN INDICATION
     Dosage: 325 MILLIGRAM (65 MG IRON), TAKE 1 TABLET BY MOUTH TWICE A DAY
     Route: 048
  20. VITAMIN D3 [Concomitant]
     Active Substance: CHOLECALCIFEROL
     Indication: PRODUCT USED FOR UNKNOWN INDICATION
     Dosage: 50 MCG (2,000 UNIT), TAKE 1 CAPSULE BY MOUTH ONCE A DAY
     Route: 048
  21. ASPIRIN. [Concomitant]
     Active Substance: ASPIRIN
     Indication: PRODUCT USED FOR UNKNOWN INDICATION
     Dosage: 81 MG, TAKE 1 TABLET BY MOUTH ONCE A DAY
     Route: 048
  22. LEVOTHYROXINE. [Concomitant]
     Active Substance: LEVOTHYROXINE
     Indication: PRODUCT USED FOR UNKNOWN INDICATION
     Dosage: 100 MCG, TAKE 1 CAPSULE BY MOUTH ONCE A DAY
     Route: 048
  23. PROTONIX [Concomitant]
     Active Substance: PANTOPRAZOLE SODIUM
     Indication: PRODUCT USED FOR UNKNOWN INDICATION
     Dosage: 40 MG, TAKE 1 TABLET BY MOUTH ONCE A DAY
     Route: 048

REACTIONS (1)
  - Drug hypersensitivity [Recovered/Resolved]

NARRATIVE: CASE EVENT DATE: 20210209
